FAERS Safety Report 5072685-0 (Version None)
Quarter: 2006Q3

REPORT INFORMATION
  Report Type: 
  Country: None (occurrence: None)
  Receive Date: 20060801
  Receipt Date: 20060727
  Transmission Date: 20061208
  Serious: Yes (Congenital Anomaly)
  Sender: FDA-Public Use
  Company Number: E2090-00054-SPO-US

PATIENT
  Sex: Male
  Weight: 3.5 kg

DRUGS (2)
  1. ZONEGRAN [Suspect]
     Indication: DRUG EXPOSURE DURING PREGNANCY
     Dosage: 600 MG, ORAL  : 400 MG, ORAL
     Route: 048
     Dates: start: 20050915, end: 20051125
  2. ZONEGRAN [Suspect]
     Indication: DRUG EXPOSURE DURING PREGNANCY
     Dosage: 600 MG, ORAL  : 400 MG, ORAL
     Route: 048
     Dates: start: 20051125, end: 20060612

REACTIONS (4)
  - CARDIAC MURMUR [None]
  - DRUG EXPOSURE DURING PREGNANCY [None]
  - NEONATAL DISORDER [None]
  - SPINE MALFORMATION [None]
